FAERS Safety Report 5760539-3 (Version None)
Quarter: 2008Q2

REPORT INFORMATION
  Report Type: 
  Country: None (occurrence: None)
  Receive Date: 20080602
  Receipt Date: 20080520
  Transmission Date: 20081010
  Serious: Yes (Hospitalization)
  Sender: FDA-Public Use
  Company Number: 2008BI008177

PATIENT
  Age: 53 Year
  Sex: Male
  Weight: 90.7194 kg

DRUGS (5)
  1. TYSABRI [Suspect]
     Indication: MULTIPLE SCLEROSIS
     Dosage: 300 MG;QM;IV
     Route: 042
     Dates: start: 20070401
  2. ZOLOFT [Concomitant]
  3. ATENOLOL [Concomitant]
  4. PROCARDIA [Concomitant]
  5. LAXATIVE [Concomitant]

REACTIONS (10)
  - AZOTAEMIA [None]
  - BLOOD PRESSURE INCREASED [None]
  - CONSTIPATION [None]
  - DYSPNOEA [None]
  - HAEMATURIA [None]
  - HEADACHE [None]
  - HYPERMAGNESAEMIA [None]
  - INTERVERTEBRAL DISC SPACE NARROWING [None]
  - LEUKOCYTOSIS [None]
  - RENAL FAILURE ACUTE [None]
